FAERS Safety Report 9819506 (Version 1)
Quarter: 2014Q1

REPORT INFORMATION
  Report Type: Spontaneous
  Country: FR (occurrence: None)
  Receive Date: 20140113
  Receipt Date: 20140113
  Transmission Date: 20141002
  Serious: Yes (Hospitalization)
  Sender: FDA-Public Use
  Company Number: 2112934

PATIENT
  Age: 85 Year
  Sex: Female

DRUGS (1)
  1. PACLITAXEL [Suspect]
     Indication: PRODUCT USED FOR UNKNOWN INDICATION
     Dosage: DOSE WAS 30% OF THE USUAL
     Dates: start: 20130823

REACTIONS (5)
  - Renal failure [None]
  - Vomiting [None]
  - Dehydration [None]
  - Clostridium difficile colitis [None]
  - Platelet count decreased [None]
